FAERS Safety Report 9248043 (Version 1)
Quarter: 2013Q1

REPORT INFORMATION
  Report Type: Spontaneous
  Country: US (occurrence: None)
  Receive Date: 20130305
  Receipt Date: 20130305
  Transmission Date: 20140127
  Serious: Yes (Death, Hospitalization, Other)
  Sender: FDA-Public Use
  Company Number: 163-21880-12101479

PATIENT
  Age: 78 Year
  Sex: Male
  Weight: 53.07 kg

DRUGS (11)
  1. REVLIMID [Suspect]
     Indication: PLASMA CELL MYELOMA
     Dosage: 10MG, 1 IN 1 D, PO
     Route: 048
     Dates: start: 20120612
  2. VITAMIN B6 (PYRIDOXINE HYDROCHLORIDE) [Concomitant]
  3. BUDESONIDE (BUDESONIDE) [Concomitant]
  4. MEGACE (MEGESTROL ACETATE) [Concomitant]
  5. MIDODRINE (MIDODRINE) [Concomitant]
  6. NEBIVOLOL (NEBIVOLOL) [Concomitant]
  7. BYSTOLIC (NEBIVOLOL HYDROCHLORIDE) [Concomitant]
  8. SYMBICORT (SYMBICORT TURBUHALER ^DRACO^) [Concomitant]
  9. SPIRIVA (TIOTROPIUM BROMIDE) [Concomitant]
  10. RENEVLA (OTHER THERAPEUTIC PRODUCTS) [Concomitant]
  11. NEPHRO-VIT (OTHER THERAPEUTIC PRODUCTS) [Concomitant]

REACTIONS (5)
  - Anaemia [None]
  - Lobar pneumonia [None]
  - Thrombocytopenia [None]
  - Neutropenia [None]
  - White blood cell count decreased [None]
